FAERS Safety Report 9410447 (Version 1)
Quarter: 2013Q3

REPORT INFORMATION
  Report Type: Spontaneous
  Country: US (occurrence: None)
  Receive Date: 20130718
  Receipt Date: 20130718
  Transmission Date: 20140515
  Serious: Yes (Life-Threatening)
  Sender: FDA-Public Use
  Company Number: None

PATIENT
  Age: 91 Year
  Sex: Male
  Weight: 86.4 kg

DRUGS (1)
  1. WARFARIN [Suspect]
     Indication: ATRIAL FIBRILLATION
     Dosage: 2 MG  EVERY DAY  PO
     Route: 048
     Dates: start: 20130107, end: 20130616

REACTIONS (10)
  - International normalised ratio increased [None]
  - Cerebrovascular accident [None]
  - Cerebral microangiopathy [None]
  - Fall [None]
  - Haemorrhage [None]
  - Syncope [None]
  - Haemoglobin decreased [None]
  - Haematuria [None]
  - Urinary retention [None]
  - Occult blood positive [None]
